FAERS Safety Report 7911366-X (Version None)
Quarter: 2011Q4

REPORT INFORMATION
  Report Type: 
  Country: None (occurrence: None)
  Receive Date: 20111114
  Receipt Date: 20111031
  Transmission Date: 20120403
  Serious: Yes (Other)
  Sender: FDA-Public Use
  Company Number: BE-CELGENEUS-013-21880-11103538

PATIENT
  Sex: Female

DRUGS (2)
  1. REVLIMID [Suspect]
     Route: 048
  2. ZOMETA [Concomitant]
     Route: 065

REACTIONS (3)
  - OSTEONECROSIS OF JAW [None]
  - IMPAIRED HEALING [None]
  - FISTULA [None]
